FAERS Safety Report 9208016 (Version 2)
Quarter: 2013Q2

REPORT INFORMATION
  Report Type: Spontaneous
  Country: US (occurrence: US)
  Receive Date: 20130403
  Receipt Date: 20130412
  Transmission Date: 20140414
  Serious: No
  Sender: FDA-Public Use
  Company Number: US-009507513-1304USA001554

PATIENT
  Age: 34 Year
  Sex: Female
  Weight: 61.22 kg

DRUGS (2)
  1. DR. SCHOLL^S FREEZE AWAY COMMON + PLANTAR WART REMOVER [Suspect]
     Indication: SKIN PAPILLOMA
     Dosage: UNK, QOW
     Route: 061
     Dates: start: 20120903, end: 20120918
  2. DR. SCHOLL^S FREEZE AWAY COMMON + PLANTAR WART REMOVER [Suspect]
     Indication: MEDICAL OBSERVATION

REACTIONS (2)
  - Application site discolouration [Recovered/Resolved]
  - Therapeutic product ineffective [Unknown]
